FAERS Safety Report 6986265-0 (Version None)
Quarter: 2010Q3

REPORT INFORMATION
  Report Type: 
  Country: None (occurrence: None)
  Receive Date: 20100915
  Receipt Date: 20100909
  Transmission Date: 20110219
  Serious: Yes (Other)
  Sender: FDA-Public Use
  Company Number: US-AMGEN-US366402

PATIENT
  Sex: Female

DRUGS (13)
  1. NPLATE [Suspect]
     Indication: IDIOPATHIC THROMBOCYTOPENIC PURPURA
     Dates: start: 20090324, end: 20090928
  2. TRAZODONE HCL [Concomitant]
     Route: 048
  3. ACTOS [Concomitant]
     Route: 048
  4. ASPIRIN [Concomitant]
     Route: 048
  5. SYNTHROID [Concomitant]
     Route: 048
  6. ZOCOR [Concomitant]
     Route: 048
  7. AVALIDE [Concomitant]
     Route: 048
  8. GLUCOVANCE [Concomitant]
     Route: 048
  9. FEOSOL [Concomitant]
     Route: 048
  10. NEURONTIN [Concomitant]
     Route: 048
  11. MULTIVITAMINS AND IRON [Concomitant]
     Route: 048
  12. INSULIN [Concomitant]
     Route: 058
  13. PERCOCET [Concomitant]
     Route: 048

REACTIONS (2)
  - DEEP VEIN THROMBOSIS [None]
  - THERAPEUTIC RESPONSE DECREASED [None]
